FAERS Safety Report 21176317 (Version 1)
Quarter: 2022Q3

REPORT INFORMATION
  Report Type: Spontaneous
  Country: US (occurrence: None)
  Receive Date: 20220804
  Receipt Date: 20220804
  Transmission Date: 20221027
  Serious: Yes (Hospitalization)
  Sender: FDA-Public Use
  Company Number: None

PATIENT
  Age: 57 Year
  Sex: Female
  Weight: 79.2 kg

DRUGS (34)
  1. PAXLOVID [Suspect]
     Active Substance: NIRMATRELVIR\RITONAVIR
     Indication: SARS-CoV-2 test positive
     Dosage: FREQUENCY : TWICE A DAY;?
     Route: 048
     Dates: start: 20220517, end: 20220521
  2. DEVICE\INSULIN NOS [Concomitant]
     Active Substance: DEVICE\INSULIN NOS
  3. INSULIN LSIPRO [Concomitant]
  4. SYNTHROID [Concomitant]
     Active Substance: LEVOTHYROXINE SODIUM
  5. DILTIAZEM [Concomitant]
     Active Substance: DILTIAZEM
  6. CHLORTHALIDONE [Concomitant]
     Active Substance: CHLORTHALIDONE
  7. LOSARTAN [Concomitant]
     Active Substance: LOSARTAN
  8. HYDROXYCHLOROQUINE [Concomitant]
     Active Substance: HYDROXYCHLOROQUINE
  9. LEFLUNIMIDE [Concomitant]
  10. MONTELUKAST [Concomitant]
     Active Substance: MONTELUKAST SODIUM
  11. TRAZODONE [Concomitant]
     Active Substance: TRAZODONE HYDROCHLORIDE
  12. ALPRAZOLAM [Concomitant]
     Active Substance: ALPRAZOLAM
  13. ALPRAZOLAM [Concomitant]
     Active Substance: ALPRAZOLAM
  14. SERTRALINE [Concomitant]
     Active Substance: SERTRALINE HYDROCHLORIDE
  15. BUSPRIINE [Concomitant]
  16. AZELASTINE EYE DROPS [Concomitant]
  17. ALBUTERAL INHALER [Concomitant]
  18. METHYLPHENIDATE [Concomitant]
     Active Substance: METHYLPHENIDATE
  19. QULIPTA [Concomitant]
     Active Substance: ATOGEPANT
  20. UBRELVY [Concomitant]
     Active Substance: UBROGEPANT
  21. ZETIA [Concomitant]
     Active Substance: EZETIMIBE
  22. IBUPROFEN [Concomitant]
     Active Substance: IBUPROFEN
  23. CYCLOBENZAPRINE [Concomitant]
     Active Substance: CYCLOBENZAPRINE
  24. VITAMINS [Concomitant]
     Active Substance: VITAMINS
  25. CALCIUM [Concomitant]
     Active Substance: CALCIUM
  26. VITAMIN D [Concomitant]
     Active Substance: VITAMIN D NOS
  27. VITAMIN A [Concomitant]
     Active Substance: VITAMIN A
  28. FOLIC ACID [Concomitant]
     Active Substance: FOLIC ACID
  29. CRANBERRY [Concomitant]
     Active Substance: CRANBERRY
  30. PROBIOTICS NOS [Concomitant]
     Active Substance: PROBIOTICS NOS
  31. FISH OIL [Concomitant]
     Active Substance: FISH OIL
  32. ASPIRIN [Concomitant]
     Active Substance: ASPIRIN
  33. TYLENOL [Concomitant]
     Active Substance: ACETAMINOPHEN
  34. ALLEGRA 24 [Concomitant]

REACTIONS (3)
  - Feeding disorder [None]
  - Insomnia [None]
  - Fluid intake reduced [None]

NARRATIVE: CASE EVENT DATE: 20220524
